FAERS Safety Report 13301570 (Version 2)
Quarter: 2017Q2

REPORT INFORMATION
  Report Type: Spontaneous
  Country: BR (occurrence: BR)
  Receive Date: 20170307
  Receipt Date: 20170421
  Transmission Date: 20170830
  Serious: Yes (Other)
  Sender: FDA-Public Use
  Company Number: BR-AMGEN-BRASP2013006991

PATIENT
  Age: 31 Year
  Sex: Female
  Weight: 57 kg

DRUGS (6)
  1. HUMIRA [Suspect]
     Active Substance: ADALIMUMAB
     Indication: PRODUCT USED FOR UNKNOWN INDICATION
     Dosage: UNK
     Route: 065
  2. METHOTREXATE. [Concomitant]
     Active Substance: METHOTREXATE
     Dosage: UNK
  3. FOLIC ACID. [Concomitant]
     Active Substance: FOLIC ACID
     Dosage: UNK
  4. ENBREL [Suspect]
     Active Substance: ETANERCEPT
     Indication: ANKYLOSING SPONDYLITIS
     Dosage: 50 MG, WEEKLY
     Route: 058
     Dates: start: 201401
  5. ENBREL [Suspect]
     Active Substance: ETANERCEPT
     Dosage: 50 MG, UNK
     Route: 065
     Dates: start: 2016
  6. PREDSIM [Concomitant]
     Active Substance: PREDNISOLONE
     Indication: PAIN
     Dosage: UNK, AS NEEDED (WHEN FEELING PAIN)

REACTIONS (19)
  - Dyspnoea [Recovered/Resolved]
  - Depression [Recovered/Resolved]
  - Hypersensitivity [Unknown]
  - Injection site pain [Recovered/Resolved]
  - Skin discolouration [Not Recovered/Not Resolved]
  - Tongue haemorrhage [Recovered/Resolved]
  - Pruritus [Unknown]
  - Injection site pruritus [Recovered/Resolved]
  - Peripheral swelling [Recovered/Resolved]
  - Lower respiratory tract infection bacterial [Recovered/Resolved]
  - Alopecia [Not Recovered/Not Resolved]
  - Gingival bleeding [Recovered/Resolved]
  - Wrong technique in product usage process [Unknown]
  - Epistaxis [Recovered/Resolved]
  - Drug hypersensitivity [Recovered/Resolved]
  - Wound [Unknown]
  - Abasia [Recovered/Resolved]
  - Injection site rash [Recovered/Resolved]
  - Tuberculosis [Recovered/Resolved]

NARRATIVE: CASE EVENT DATE: 2014
